FAERS Safety Report 11875696 (Version 1)
Quarter: 2015Q4

REPORT INFORMATION
  Report Type: Spontaneous
  Country: ES (occurrence: ES)
  Receive Date: 20151229
  Receipt Date: 20151229
  Transmission Date: 20160305
  Serious: Yes (Other)
  Sender: FDA-Public Use
  Company Number: ES-TEVA-621396ISR

PATIENT
  Age: 67 Year
  Sex: Male

DRUGS (2)
  1. LEVODOPA, CARBIDOPA [Concomitant]
     Active Substance: CARBIDOPA\LEVODOPA
     Route: 065
  2. RISPERIDONE. [Suspect]
     Active Substance: RISPERIDONE
     Indication: AGITATION
     Route: 030

REACTIONS (3)
  - Agitation [Unknown]
  - Sedation [Unknown]
  - Coma [Unknown]
